FAERS Safety Report 25063928 (Version 1)
Quarter: 2025Q1

REPORT INFORMATION
  Report Type: Spontaneous
  Country: US (occurrence: US)
  Receive Date: 20250311
  Receipt Date: 20250311
  Transmission Date: 20250409
  Serious: Yes (Other)
  Sender: PURDUE
  Company Number: US-PURDUE PHARMA-USA-2025-0315870

PATIENT
  Age: 44 Year
  Sex: Female

DRUGS (15)
  1. OXYCODONE HYDROCHLORIDE [Suspect]
     Active Substance: OXYCODONE HYDROCHLORIDE
     Indication: Headache
     Route: 065
  2. OXYCODONE HYDROCHLORIDE [Suspect]
     Active Substance: OXYCODONE HYDROCHLORIDE
     Dosage: 5?MG EVERY 4?H
     Route: 065
  3. MAGNESIUM [Suspect]
     Active Substance: MAGNESIUM
     Indication: Headache
     Route: 065
  4. ACETAMINOPHEN [Suspect]
     Active Substance: ACETAMINOPHEN
     Indication: Headache
     Dosage: 1000?MG TID
     Route: 065
  5. METOCLOPRAMIDE [Suspect]
     Active Substance: METOCLOPRAMIDE
     Indication: Headache
     Dosage: 10?MG EVERY 6?H
     Route: 065
  6. ONDANSETRON [Suspect]
     Active Substance: ONDANSETRON
     Indication: Headache
     Dosage: 4?MG EVERY 6?H
     Route: 065
  7. ACETAZOLAMIDE [Suspect]
     Active Substance: ACETAZOLAMIDE
     Indication: Headache
     Dosage: 250?MG TWICE DAILY
     Route: 065
  8. ACETAZOLAMIDE [Suspect]
     Active Substance: ACETAZOLAMIDE
     Indication: Pulmonary arterial hypertension
  9. FUROSEMIDE [Suspect]
     Active Substance: FUROSEMIDE
     Indication: Pulmonary arterial hypertension
     Dosage: 20?MG PO QD
     Route: 048
  10. FUROSEMIDE [Suspect]
     Active Substance: FUROSEMIDE
     Dosage: 40?MG EVERY 8?H
     Route: 042
  11. TREPROSTINIL [Concomitant]
     Active Substance: TREPROSTINIL
     Indication: Pulmonary arterial hypertension
     Dosage: 0.4?MG PO TID
     Route: 048
  12. TREPROSTINIL [Concomitant]
     Active Substance: TREPROSTINIL
     Dosage: 1.875?MG TID
     Route: 048
  13. SPIRONOLACTONE [Concomitant]
     Active Substance: SPIRONOLACTONE
     Indication: Pulmonary arterial hypertension
     Dosage: 50?MG ONCE A DAY
     Route: 048
  14. SILDENAFIL [Concomitant]
     Active Substance: SILDENAFIL
     Indication: Vasodilation procedure
     Dosage: 20?MG PO THREE TIMES A DAY
     Route: 048
  15. MACITENTAN [Concomitant]
     Active Substance: MACITENTAN
     Indication: Vasodilation procedure
     Dosage: 10?MG PO QD
     Route: 048

REACTIONS (4)
  - Hypokalaemia [Recovered/Resolved]
  - Vomiting [Recovered/Resolved]
  - Drug ineffective [Unknown]
  - Product use in unapproved indication [Unknown]
